FAERS Safety Report 4452348-2 (Version None)
Quarter: 2004Q3

REPORT INFORMATION
  Report Type: 
  Country: None (occurrence: None)
  Receive Date: 20040917
  Receipt Date: 20040820
  Transmission Date: 20050211
  Serious: Yes (Hospitalization)
  Sender: FDA-Public Use
  Company Number: MYVW-NO-0409S-0065

PATIENT
  Age: 45 Year
  Sex: Male

DRUGS (8)
  1. MYOVIEW [Suspect]
     Dosage: 740 MBQ, SINGLE DOSE, I.V.
     Route: 042
     Dates: start: 20040810, end: 20040810
  2. TECHNETIUM TC 99M GENERATOR [Concomitant]
  3. MIDAZOLAM HCL [Concomitant]
  4. DOPAMINE HYDROCHLORIDE [Concomitant]
  5. METHYLPREDNISOLONE SODIUM SUCCINATE [Concomitant]
  6. CEFTRIXONE SODIUM [Concomitant]
  7. MINOCYCLINE HCL [Concomitant]
  8. FAMOTIDINE [Concomitant]

REACTIONS (2)
  - HYPERSENSITIVITY [None]
  - PYREXIA [None]
